FAERS Safety Report 16623705 (Version 3)
Quarter: 2019Q3

REPORT INFORMATION
  Report Type: Spontaneous
  Country: JP (occurrence: JP)
  Receive Date: 20190724
  Receipt Date: 20190905
  Transmission Date: 20191004
  Serious: Yes (Death, Other)
  Sender: FDA-Public Use
  Company Number: JP-AMGEN-JPNSP2019116664

PATIENT
  Age: 86 Year
  Sex: Male
  Weight: 52 kg

DRUGS (17)
  1. SIGMART [Concomitant]
     Active Substance: NICORANDIL
     Dosage: 5 MILLIGRAM, TID, IMMEDIATELY AFTER EACH MEAL
     Dates: start: 20190711
  2. HARNAL [Concomitant]
     Active Substance: TAMSULOSIN HYDROCHLORIDE
     Dosage: 0.2 MILLIGRAM, QD, IMMEDIATELY AFTER EACH BREAKFAST
     Dates: start: 20190711
  3. ANPLAG [Concomitant]
     Active Substance: SARPOGRELATE
     Dosage: 100 MILLIGRAM, TID, IMMEDIATELY AFTER EACH MEAL
     Dates: start: 20190711
  4. LOPEMIN [LOPERAMIDE HYDROCHLORIDE] [Concomitant]
     Dosage: 1 MILLIGRAM, QD, IMMEDIATELY AFTER EACH BREAKFAST
     Dates: start: 20190711
  5. ARICEPT [Concomitant]
     Active Substance: DONEPEZIL HYDROCHLORIDE
     Dosage: 5 MILLIGRAM, QD, IMMEDIATELY AFTER EACH DINNER
     Dates: start: 20190711
  6. BELSOMRA [Concomitant]
     Active Substance: SUVOREXANT
     Dosage: 15 MILLIGRAM, QD, IMMEDIATELY AFTER EACH DINNER
     Dates: start: 20190711
  7. CASODEX [Concomitant]
     Active Substance: BICALUTAMIDE
     Dosage: 80 MILLIGRAM, QD, IMMEDIATELY AFTER EACH DINNER
     Dates: start: 20190711
  8. NEXIUM [Concomitant]
     Active Substance: ESOMEPRAZOLE MAGNESIUM
     Dosage: 20 MILLIGRAM, QD, IMMEDIATELY AFTER EACH DINNER
     Dates: start: 20190711
  9. BAYASPIRIN [Concomitant]
     Active Substance: ASPIRIN
     Dosage: 100 MILLIGRAM, QD, IMMEDIATELY AFTER EACH DINNER
     Dates: start: 20190711
  10. GLACTIV [Concomitant]
     Active Substance: SITAGLIPTIN
     Dosage: 25 MILLIGRAM, QD, IMMEDIATELY AFTER EACH DINNER
     Dates: start: 20190711
  11. CALTAN [Concomitant]
     Active Substance: CALCIUM CARBONATE
     Dosage: 500 MILLIGRAM, TID, IMMEDIATELY AFTER EACH MEAL
     Dates: start: 20190711
  12. MAINTATE [Concomitant]
     Active Substance: BISOPROLOL FUMARATE
     Dosage: 1.25 MILLIGRAM, QD, IMMEDIATELY AFTER EACH DINNER
     Dates: start: 20190711
  13. METLIGINE D [Concomitant]
     Dosage: 2 MILLIGRAM, BID, IMMEDIATELY AFTER EACH BREAKFAST AND DINNER
     Dates: start: 20190711
  14. FOIPAN [Concomitant]
     Active Substance: CAMOSTAT MESYLATE
     Dosage: 200 MILLIGRAM, TID, IMMEDIATELY AFTER EACH MEAL
     Dates: start: 20190711
  15. EVENITY [Suspect]
     Active Substance: ROMOSOZUMAB-AQQG
     Indication: OSTEOPOROSIS
     Dosage: 210 MILLIGRAM
     Route: 058
     Dates: start: 20190611
  16. FOSRENOL [Concomitant]
     Active Substance: LANTHANUM CARBONATE
     Dosage: 500 MILLIGRAM, TID, IMMEDIATELY AFTER EACH MEAL
     Dates: start: 20190711
  17. TANATRIL [Concomitant]
     Active Substance: IMIDAPRIL
     Dosage: 5 MILLIGRAM, QD, IMMEDIATELY AFTER EACH DINNER
     Dates: start: 20190711

REACTIONS (1)
  - Cardiac failure [Fatal]

NARRATIVE: CASE EVENT DATE: 20190712
